FAERS Safety Report 12714605 (Version 1)
Quarter: 2016Q3

REPORT INFORMATION
  Report Type: Spontaneous
  Country: CH (occurrence: CH)
  Receive Date: 20160905
  Receipt Date: 20160905
  Transmission Date: 20161109
  Serious: Yes (Hospitalization)
  Sender: FDA-Public Use
  Company Number: CH-JNJFOC-20160827011

PATIENT
  Age: 77 Year
  Sex: Female

DRUGS (6)
  1. MADOPAR [Concomitant]
     Active Substance: BENSERAZIDE HYDROCHLORIDE\LEVODOPA
     Route: 048
  2. HALDOL [Suspect]
     Active Substance: HALOPERIDOL
     Indication: AGITATION
     Dosage: SINGLE ADMINISTRATION
     Route: 065
     Dates: start: 20160419, end: 20160419
  3. REMERON [Concomitant]
     Active Substance: MIRTAZAPINE
     Route: 048
  4. SIFROL [Concomitant]
     Active Substance: PRAMIPEXOLE
     Route: 048
  5. ZOLPIDEM STREULI [Concomitant]
     Active Substance: ZOLPIDEM TARTRATE
     Route: 048
  6. HALDOL [Suspect]
     Active Substance: HALOPERIDOL
     Indication: CONFUSIONAL STATE
     Dosage: SINGLE ADMINISTRATION
     Route: 065
     Dates: start: 20160419, end: 20160419

REACTIONS (2)
  - Hypotension [Recovered/Resolved]
  - Altered state of consciousness [Recovered/Resolved]

NARRATIVE: CASE EVENT DATE: 20160420
